FAERS Safety Report 25537046 (Version 4)
Quarter: 2025Q4

REPORT INFORMATION
  Report Type: Spontaneous
  Country: EU (occurrence: EU)
  Receive Date: 20250710
  Receipt Date: 20251119
  Transmission Date: 20260119
  Serious: Yes (Death, Life-Threatening, Hospitalization)
  Sender: SANDOZ
  Company Number: EU-ELI_LILLY_AND_COMPANY-DE202506027167

PATIENT
  Age: 66 Year
  Sex: Male

DRUGS (18)
  1. CARBOPLATIN [Suspect]
     Active Substance: CARBOPLATIN
     Indication: Non-small cell lung cancer
     Dosage: 3.75 AUC MG/ML/MIN, CYCLICAL
     Route: 042
     Dates: start: 20250417
  2. PEMETREXED [Suspect]
     Active Substance: PEMETREXED
     Indication: Non-small cell lung cancer
     Dosage: 500 MG/M2, {CYCLICAL}, 500 MG/M2, CYCLICAL/ EVERY 3 WEEKS MG/M2 MG/M2
     Route: 042
     Dates: start: 20250417
  3. ALLOPURINOL [Concomitant]
     Active Substance: ALLOPURINOL
     Indication: Non-small cell lung cancer
     Dosage: UNK
     Route: 065
  4. APIXABAN [Concomitant]
     Active Substance: APIXABAN
     Indication: Deep vein thrombosis
     Dosage: UNK
     Route: 065
  5. CANDESARTAN [Concomitant]
     Active Substance: CANDESARTAN
     Indication: Hypertension
     Dosage: UNK
     Route: 065
  6. DEXAMETHASONE [Concomitant]
     Active Substance: DEXAMETHASONE
     Indication: Prophylaxis
     Dosage: UNK
     Route: 065
  7. DEXPANTHENOL [Concomitant]
     Active Substance: DEXPANTHENOL
     Indication: Oropharyngeal pain
     Dosage: UNK
     Route: 065
  8. FOLIC ACID [Concomitant]
     Active Substance: FOLIC ACID
     Indication: Prophylaxis
     Dosage: UNK
     Route: 065
  9. GRANISETRON [Concomitant]
     Active Substance: GRANISETRON
     Indication: Prophylaxis
     Dosage: UNK
     Route: 065
  10. HEPARIN [Concomitant]
     Active Substance: HEPARIN SODIUM
     Indication: Prophylaxis
     Dosage: UNK
     Route: 065
  11. LOPERAMIDE [Concomitant]
     Active Substance: LOPERAMIDE
     Indication: Diarrhoea
     Dosage: UNK
     Route: 065
  12. METOCLOPRAMIDE [Concomitant]
     Active Substance: METOCLOPRAMIDE
     Indication: Nausea
     Dosage: UNK
     Route: 065
  13. METOCLOPRAMIDE [Concomitant]
     Active Substance: METOCLOPRAMIDE
     Indication: Prophylaxis
  14. METAMIZOLE [Concomitant]
     Active Substance: METAMIZOLE
     Indication: Back pain
     Dosage: UNK
     Route: 065
  15. PANTOPRAZOLE [Concomitant]
     Active Substance: PANTOPRAZOLE
     Indication: Prophylaxis
     Dosage: UNK
     Route: 065
  16. PEMBROLIZUMAB [Concomitant]
     Active Substance: PEMBROLIZUMAB
     Indication: Non-small cell lung cancer
     Dosage: 200 MG, CYCLICAL
     Route: 042
     Dates: start: 20250417
  17. POTASSIUM CITRATE [Concomitant]
     Active Substance: POTASSIUM CITRATE
     Indication: Prophylaxis
     Dosage: UNK
     Route: 065
  18. Potassium phosphate monobasic;Sodium phosphate [Concomitant]
     Indication: Prophylaxis
     Dosage: UNK
     Route: 065

REACTIONS (3)
  - Neutropenic infection [Fatal]
  - Colitis [Not Recovered/Not Resolved]
  - Ileus [Not Recovered/Not Resolved]

NARRATIVE: CASE EVENT DATE: 20250622
